FAERS Safety Report 6123254-2 (Version None)
Quarter: 2009Q1

REPORT INFORMATION
  Report Type: 
  Country: None (occurrence: None)
  Receive Date: 20090318
  Receipt Date: 20090313
  Transmission Date: 20090719
  Serious: Yes (Death, Hospitalization)
  Sender: FDA-Public Use
  Company Number: DE-SANOFI-SYNTHELABO-F04200900018

PATIENT
  Sex: Male

DRUGS (3)
  1. CAPECITABINE [Suspect]
     Indication: GASTRIC CANCER STAGE IV
     Dosage: UNK
     Route: 048
     Dates: start: 20081201, end: 20081201
  2. EPIRUBICIN [Suspect]
     Indication: GASTRIC CANCER STAGE IV
     Route: 041
     Dates: start: 20081201, end: 20081201
  3. OXALIPLATIN [Suspect]
     Indication: GASTRIC CANCER STAGE IV
     Route: 041
     Dates: start: 20081201, end: 20081201

REACTIONS (13)
  - ANOREXIA [None]
  - ASCITES [None]
  - ASTHENIA [None]
  - BACK PAIN [None]
  - CHRONIC OBSTRUCTIVE PULMONARY DISEASE [None]
  - DEHYDRATION [None]
  - DISEASE PROGRESSION [None]
  - GENERAL PHYSICAL HEALTH DETERIORATION [None]
  - NAUSEA [None]
  - PANCYTOPENIA [None]
  - PSYCHOTIC DISORDER DUE TO A GENERAL MEDICAL CONDITION [None]
  - SYNCOPE [None]
  - VOMITING [None]
